FAERS Safety Report 4466952-9 (Version None)
Quarter: 2004Q4

REPORT INFORMATION
  Report Type: 
  Country: None (occurrence: None)
  Receive Date: 20041006
  Receipt Date: 20040923
  Transmission Date: 20050328
  Serious: Yes (Hospitalization)
  Sender: FDA-Public Use
  Company Number: 200417234US

PATIENT
  Sex: Female

DRUGS (2)
  1. KETEK [Suspect]
     Dosage: DOSE: UNK
     Route: 048
  2. PREDNISONE [Concomitant]
     Dosage: DOSE: UNK

REACTIONS (3)
  - DYSPNOEA [None]
  - OEDEMA [None]
  - WHITE BLOOD CELL COUNT INCREASED [None]
